FAERS Safety Report 4744060-7 (Version None)
Quarter: 2005Q3

REPORT INFORMATION
  Report Type: 
  Country: None (occurrence: None)
  Receive Date: 20050809
  Receipt Date: 20050728
  Transmission Date: 20060218
  Serious: Yes (Hospitalization)
  Sender: FDA-Public Use
  Company Number: HQWYE641901AUG05

PATIENT
  Age: 67 Year
  Sex: Male
  Weight: 91.25 kg

DRUGS (4)
  1. RAPAMUNE [Suspect]
     Indication: PROPHYLAXIS AGAINST TRANSPLANT REJECTION
     Dosage: 5 MG 1X PER 1 DAY, ORAL
     Route: 048
     Dates: start: 20050318
  2. CORTICOSTEROIDS (CORTICOSTEROIDS, ) [Suspect]
     Indication: PROPHYLAXIS AGAINST TRANSPLANT REJECTION
     Dosage: UNKNOWN DOSE/FREQUENCY, ORAL
     Route: 048
  3. MYCOPHENOLATE MOFETIL (MYCOPHENOLATE MOFETIL, ) [Suspect]
     Indication: PROPHYLAXIS AGAINST TRANSPLANT REJECTION
     Dosage: UNKNOWN DOSE/FREQUENCY, ORAL
     Route: 048
  4. ZENAPAX [Suspect]
     Indication: PROPHYLAXIS AGAINST TRANSPLANT REJECTION
     Dosage: UNKNOWN DOSE/FREQUENCY

REACTIONS (12)
  - AORTIC CALCIFICATION [None]
  - ATELECTASIS [None]
  - BLOOD CREATININE INCREASED [None]
  - BLOOD PRESSURE DIASTOLIC DECREASED [None]
  - BLOOD SODIUM DECREASED [None]
  - BLOOD UREA INCREASED [None]
  - CARDIOMEGALY [None]
  - DYSPNOEA [None]
  - HAEMATOCRIT DECREASED [None]
  - HAEMOGLOBIN DECREASED [None]
  - RED BLOOD CELL COUNT DECREASED [None]
  - RESPIRATORY RATE INCREASED [None]
